FAERS Safety Report 7989510-8 (Version None)
Quarter: 2011Q4

REPORT INFORMATION
  Report Type: 
  Country: None (occurrence: None)
  Receive Date: 20111219
  Receipt Date: 20110829
  Transmission Date: 20120403
  Serious: No
  Sender: FDA-Public Use
  Company Number: US-ASTRAZENECA-2011SE51883

PATIENT
  Age: 58 Year
  Sex: Female
  Weight: 71.7 kg

DRUGS (4)
  1. SYNTHROID [Concomitant]
     Indication: THYROID DISORDER
  2. CRESTOR [Suspect]
     Indication: BLOOD CHOLESTEROL
     Route: 048
     Dates: start: 20110601
  3. INSULIN PUMP [Concomitant]
     Indication: DIABETES MELLITUS
  4. LISINOPRIL [Concomitant]
     Indication: BLOOD PRESSURE

REACTIONS (3)
  - LOW DENSITY LIPOPROTEIN DECREASED [None]
  - BLOOD TRIGLYCERIDES DECREASED [None]
  - BLOOD CHOLESTEROL DECREASED [None]
